FAERS Safety Report 10977723 (Version 1)
Quarter: 2015Q1

REPORT INFORMATION
  Report Type: Spontaneous
  Country: US (occurrence: None)
  Receive Date: 20150330
  Receipt Date: 20150330
  Transmission Date: 20150721
  Serious: Yes (Other)
  Sender: FDA-Public Use
  Company Number: AMAG201500221

PATIENT
  Age: 29 Year
  Sex: Female
  Weight: 91.2 kg

DRUGS (1)
  1. MAKENA [Suspect]
     Active Substance: HYDROXYPROGESTERONE CAPROATE
     Indication: PREMATURE DELIVERY
     Route: 030
     Dates: start: 201503, end: 201503

REACTIONS (4)
  - Unresponsive to stimuli [None]
  - Miosis [None]
  - Hypoaesthesia [None]
  - Flushing [None]

NARRATIVE: CASE EVENT DATE: 20150313
